FAERS Safety Report 8048561-8 (Version None)
Quarter: 2012Q1

REPORT INFORMATION
  Report Type: 
  Country: None (occurrence: None)
  Receive Date: 20120117
  Receipt Date: 20120112
  Transmission Date: 20120608
  Serious: Yes (Other)
  Sender: FDA-Public Use
  Company Number: PL-ROXANE LABORATORIES, INC.-2012-EU-00154GD

PATIENT
  Age: 71 Year
  Sex: Male

DRUGS (18)
  1. MORPHINE [Suspect]
     Dosage: 180 MG
     Route: 048
     Dates: end: 20110401
  2. MORPHINE [Suspect]
     Dosage: 240 MG
     Route: 048
     Dates: start: 20110401
  3. DICLOFENAC [Concomitant]
     Indication: PAIN
     Dosage: 150 MG
  4. PANTOPRAZOLE [Concomitant]
     Dosage: 20 MG
  5. AMITRIPTYLINE HCL [Concomitant]
     Dosage: 50 MG
  6. ENEMAS [Concomitant]
     Indication: CONSTIPATION
     Route: 054
     Dates: start: 20110401
  7. MORPHINE [Suspect]
     Indication: PAIN
     Dosage: 20 MG
     Route: 048
     Dates: start: 20110201, end: 20110401
  8. LACTULOSE [Concomitant]
     Indication: CONSTIPATION
     Dosage: 45 ML
     Route: 048
  9. ALPRAZOLAM [Concomitant]
     Dosage: 0.75 MG
  10. MORPHINE [Suspect]
     Dosage: 40 MG
     Route: 048
     Dates: start: 20110401
  11. MORPHINE [Suspect]
     Indication: BREAKTHROUGH PAIN
     Dosage: 120 MG
     Route: 048
     Dates: start: 20110201
  12. DEXAMETHASONE [Concomitant]
     Dosage: 4 MG
     Dates: start: 20110401
  13. CARBAMAZEPINE [Concomitant]
     Indication: PAIN
     Dosage: 200 MG
     Dates: start: 20110201, end: 20110401
  14. METOCLOPRAMIDE [Concomitant]
     Dosage: 30 MG
  15. DEXAMETHASONE [Concomitant]
     Dosage: 3 MG
  16. PAMIDRONATE DISODIUM [Concomitant]
     Dosage: 3.2143 MG
  17. CARBAMAZEPINE [Concomitant]
     Dosage: 400 MG
     Dates: start: 20110401
  18. PANTOPRAZOLE [Concomitant]
     Dosage: 40 MG
     Dates: start: 20110401

REACTIONS (2)
  - DRUG INEFFECTIVE [None]
  - CONSTIPATION [None]
